FAERS Safety Report 15557311 (Version 2)
Quarter: 2018Q4

REPORT INFORMATION
  Report Type: Not Available
  Country: US (occurrence: US)
  Receive Date: 20181026
  Receipt Date: 20181214
  Transmission Date: 20190205
  Serious: Yes (Hospitalization)
  Sender: FDA-Public Use
  Company Number: US-NEUROCRINE BIOSCIENCES INC.-2018NBI03134

PATIENT
  Sex: Female

DRUGS (9)
  1. KLONOPIN [Concomitant]
     Active Substance: CLONAZEPAM
  2. VITAMIN E BLEND [Concomitant]
  3. ZYPREXA [Concomitant]
     Active Substance: OLANZAPINE
  4. CLOZARIL [Concomitant]
     Active Substance: CLOZAPINE
  5. INGREZZA [Suspect]
     Active Substance: VALBENAZINE
     Indication: TARDIVE DYSKINESIA
     Route: 048
  6. VITAMIN B12 [Concomitant]
     Active Substance: CYANOCOBALAMIN
  7. ZOLOFT [Concomitant]
     Active Substance: SERTRALINE HYDROCHLORIDE
     Dates: start: 20181202
  8. LOPRESSOR [Concomitant]
     Active Substance: METOPROLOL TARTRATE
  9. INGREZZA [Suspect]
     Active Substance: VALBENAZINE
     Route: 048

REACTIONS (1)
  - Paranoia [Unknown]
